FAERS Safety Report 19448991 (Version 4)
Quarter: 2021Q4

REPORT INFORMATION
  Report Type: Report from Study
  Country: CA (occurrence: CA)
  Receive Date: 20210622
  Receipt Date: 20211027
  Transmission Date: 20220303
  Serious: Yes (Life-Threatening, Hospitalization, Other)
  Sender: FDA-Public Use
  Company Number: NVSC2021CA132838

PATIENT
  Sex: Male

DRUGS (8)
  1. ELTROMBOPAG OLAMINE [Suspect]
     Active Substance: ELTROMBOPAG OLAMINE
     Indication: Immune thrombocytopenia
     Dosage: 50 MG, QD (STRENGTH: 50 MG)
     Route: 065
  2. ELTROMBOPAG OLAMINE [Suspect]
     Active Substance: ELTROMBOPAG OLAMINE
     Dosage: 100 MG, QD (STRENGTH: 100 MG)
     Route: 048
  3. ELTROMBOPAG OLAMINE [Suspect]
     Active Substance: ELTROMBOPAG OLAMINE
     Dosage: 50 MG, QD (STRENGTH: 50 MG)
     Route: 048
     Dates: start: 20210505
  4. RITUXIMAB [Suspect]
     Active Substance: RITUXIMAB
     Indication: Product used for unknown indication
     Dosage: 1 DF
     Route: 065
     Dates: start: 20200709
  5. RITUXIMAB [Suspect]
     Active Substance: RITUXIMAB
     Dosage: 1 DF
     Route: 065
     Dates: start: 20200716
  6. RITUXIMAB [Suspect]
     Active Substance: RITUXIMAB
     Dosage: 1 ROUND
     Route: 065
     Dates: start: 20210119
  7. IMURAN [Suspect]
     Active Substance: AZATHIOPRINE
     Indication: Immunosuppressant drug therapy
     Route: 065
  8. IMATINIB MESYLATE [Suspect]
     Active Substance: IMATINIB MESYLATE
     Indication: Product used for unknown indication
     Dosage: 96 G, QW
     Route: 065
     Dates: start: 202005

REACTIONS (10)
  - Platelet count decreased [Unknown]
  - Non-Hodgkin^s lymphoma unspecified histology aggressive [Unknown]
  - Asthenia [Unknown]
  - Eye infection fungal [Unknown]
  - Abdominal discomfort [Unknown]
  - Flatulence [Unknown]
  - Incorrect dose administered [Unknown]
  - Epistaxis [Unknown]
  - Therapy non-responder [Unknown]
  - Drug ineffective [Unknown]
